FAERS Safety Report 8590779-X (Version None)
Quarter: 2012Q3

REPORT INFORMATION
  Report Type: 
  Country: None (occurrence: None)
  Receive Date: 20120813
  Receipt Date: 20120724
  Transmission Date: 20120928
  Serious: No
  Sender: FDA-Public Use
  Company Number: US-009507513-1207USA010905

PATIENT

DRUGS (3)
  1. IMPLANON [Suspect]
     Indication: CONTRACEPTION
     Dosage: 68 MG, ONCE
     Route: 059
     Dates: start: 20120322
  2. ZOLOFT [Concomitant]
  3. VITAMINS (UNSPECIFIED) [Concomitant]

REACTIONS (4)
  - ALOPECIA [None]
  - MENORRHAGIA [None]
  - METRORRHAGIA [None]
  - HEADACHE [None]
